FAERS Safety Report 9173515 (Version 1)
Quarter: 2013Q1

REPORT INFORMATION
  Report Type: Spontaneous
  Country: US (occurrence: None)
  Receive Date: 20130314
  Receipt Date: 20130314
  Transmission Date: 20140127
  Serious: Yes (Other)
  Sender: FDA-Public Use
  Company Number: 1621308

PATIENT
  Age: 72 Year
  Sex: Male

DRUGS (1)
  1. PRECEDEX [Suspect]
     Indication: PRODUCT USED FOR UNKNOWN INDICATION
     Dates: end: 20130303

REACTIONS (7)
  - Dyspnoea [None]
  - Heart rate increased [None]
  - Blood pressure increased [None]
  - Agitation [None]
  - Vomiting [None]
  - Tremor [None]
  - Drug withdrawal syndrome [None]
